FAERS Safety Report 4627614-8 (Version None)
Quarter: 2005Q2

REPORT INFORMATION
  Report Type: 
  Country: None (occurrence: None)
  Receive Date: 20050401
  Receipt Date: 20050401
  Transmission Date: 20051028
  Serious: Yes (Life-Threatening, Hospitalization)
  Sender: FDA-Public Use
  Company Number: None

PATIENT
  Age: 36 Year
  Sex: Female
  Weight: 100 kg

DRUGS (6)
  1. FLUCONAZOLE [Suspect]
     Dosage: 400 DAILY ORAL
     Route: 048
     Dates: start: 20040809, end: 20040828
  2. VENLAFAXINE HCL [Suspect]
     Dosage: 112.5 DAILY ORAL
     Route: 048
     Dates: start: 20040803, end: 20040903
  3. FLUOXETINE [Concomitant]
  4. METOPROLOL TARTRATE [Concomitant]
  5. VANCOMYCIN [Concomitant]
  6. CEFTRIAXONE [Concomitant]

REACTIONS (3)
  - DRUG INTERACTION [None]
  - ELECTROCARDIOGRAM QT PROLONGED [None]
  - TORSADE DE POINTES [None]
